FAERS Safety Report 20719219 (Version 1)
Quarter: 2022Q2

REPORT INFORMATION
  Report Type: Spontaneous
  Country: IT (occurrence: IT)
  Receive Date: 20220418
  Receipt Date: 20220418
  Transmission Date: 20220721
  Serious: Yes (Other)
  Sender: FDA-Public Use
  Company Number: IT-MSNLABS-2022MSNLIT00378

PATIENT

DRUGS (2)
  1. PACLITAXEL [Suspect]
     Active Substance: PACLITAXEL
     Indication: Triple negative breast cancer
     Dosage: 2 COMPLETE CYCLES
     Route: 065
  2. CARBOPLATIN [Suspect]
     Active Substance: CARBOPLATIN
     Indication: Triple negative breast cancer
     Dosage: 2 COMPLETE CYCLES
     Route: 065

REACTIONS (3)
  - Drug ineffective [Unknown]
  - Disease progression [Unknown]
  - Maternal exposure during pregnancy [Unknown]
